FAERS Safety Report 14223755 (Version 3)
Quarter: 2018Q2

REPORT INFORMATION
  Report Type: Spontaneous
  Country: IT (occurrence: IT)
  Receive Date: 20171125
  Receipt Date: 20180504
  Transmission Date: 20180711
  Serious: Yes (Other)
  Sender: FDA-Public Use
  Company Number: IT-ACCORD-061343

PATIENT
  Age: 50 Year
  Sex: Female

DRUGS (3)
  1. DEXAMETHASONE. [Concomitant]
     Active Substance: DEXAMETHASONE
     Indication: PLASMA CELL MYELOMA
     Route: 065
     Dates: start: 201403, end: 201406
  2. BENDAMUSTINE/BENDAMUSTINE HYDROCHLORIDE [Suspect]
     Active Substance: BENDAMUSTINE HYDROCHLORIDE
     Indication: PLASMA CELL MYELOMA
     Route: 065
     Dates: start: 201403, end: 201407
  3. BORTEZOMIB [Concomitant]
     Active Substance: BORTEZOMIB
     Indication: PLASMA CELL MYELOMA
     Route: 065
     Dates: start: 201403, end: 201407

REACTIONS (1)
  - Plasma cell myeloma [Unknown]
